FAERS Safety Report 9137984 (Version 1)
Quarter: 2013Q1

REPORT INFORMATION
  Report Type: Spontaneous
  Country: US (occurrence: US)
  Receive Date: 20130304
  Receipt Date: 20130304
  Transmission Date: 20140127
  Serious: No
  Sender: FDA-Public Use
  Company Number: US-ABBOTT-12P-163-0914726-00

PATIENT
  Age: 58 Year
  Sex: Male
  Weight: 81.72 kg

DRUGS (6)
  1. ANDROGEL 1% [Suspect]
     Indication: BLOOD TESTOSTERONE DECREASED
     Dosage: 1 PACKET QD; APPLYING MEDICATION TO SHOULDERS AND UPPER ARMS
     Route: 061
     Dates: end: 2011
  2. ANDROGEL 1% [Suspect]
     Indication: INJURY
     Dosage: 1 PACKET QD
     Route: 061
     Dates: start: 2011
  3. ANDROGEL 1% [Suspect]
     Indication: PELVIC FRACTURE
  4. LISINOPRIL [Concomitant]
     Indication: HYPERTENSION
  5. UNKNOWN OTHER BLOOD PRESSURE MEDICATION [Concomitant]
     Indication: HYPERTENSION
  6. CORISONE INJECTIONS [Concomitant]
     Indication: MUSCULOSKELETAL PAIN
     Dosage: THREE INJECTIONS RECEIVED TO SHOULDER

REACTIONS (5)
  - Malaise [Recovered/Resolved]
  - Fatigue [Recovered/Resolved]
  - Headache [Recovered/Resolved]
  - Inappropriate schedule of drug administration [Not Recovered/Not Resolved]
  - Skin odour abnormal [Not Recovered/Not Resolved]
